FAERS Safety Report 11710882 (Version 1)
Quarter: 2015Q4

REPORT INFORMATION
  Report Type: Spontaneous
  Country: US (occurrence: US)
  Receive Date: 20151104
  Receipt Date: 20151104
  Transmission Date: 20160304
  Serious: No
  Sender: FDA-Public Use
  Company Number: US-ELI_LILLY_AND_COMPANY-US201104007137

PATIENT
  Sex: Female

DRUGS (2)
  1. FORTEO [Suspect]
     Active Substance: TERIPARATIDE
     Indication: OSTEOPENIA
     Dosage: 20 UG, QD
     Dates: start: 20110420
  2. ACTONEL [Concomitant]
     Active Substance: RISEDRONATE SODIUM
     Indication: OSTEOPENIA

REACTIONS (9)
  - Off label use [Unknown]
  - Injection site pruritus [Unknown]
  - Nausea [Unknown]
  - Appetite disorder [Unknown]
  - Injection site swelling [Recovered/Resolved]
  - Feeling hot [Unknown]
  - Back disorder [Unknown]
  - Chills [Unknown]
  - Feeling abnormal [Unknown]
